FAERS Safety Report 19501298 (Version 1)
Quarter: 2021Q3

REPORT INFORMATION
  Report Type: Spontaneous
  Country: GB (occurrence: GB)
  Receive Date: 20210707
  Receipt Date: 20210707
  Transmission Date: 20211014
  Serious: Yes (Other)
  Sender: FDA-Public Use
  Company Number: GB-TEVA-2021-GB-1929364

PATIENT
  Age: 66 Year
  Sex: Female

DRUGS (15)
  1. ATENOLOL. [Concomitant]
     Active Substance: ATENOLOL
     Indication: HYPERTENSION
     Dosage: 50 MILLIGRAM DAILY;
  2. ATORVASTATIN [Concomitant]
     Active Substance: ATORVASTATIN
     Indication: HYPERLIPIDAEMIA
     Dosage: 40 MILLIGRAM DAILY; 40MG ON
  3. CO?DYDRAMOL [Concomitant]
     Active Substance: ACETAMINOPHEN\DIHYDROCODEINE
     Dosage: 1?2 QDS PRN
  4. DULOXETINE. [Concomitant]
     Active Substance: DULOXETINE
     Dosage: 60 MILLIGRAM DAILY;
  5. LEVOCETIRIZINE [Concomitant]
     Active Substance: LEVOCETIRIZINE
  6. LEVOCETIRIZINE [Suspect]
     Active Substance: LEVOCETIRIZINE
     Indication: HYPERSENSITIVITY
     Dosage: 10 MILLIGRAM DAILY; EVENING AND BEDTIME
     Route: 065
  7. TRAZODONE [Concomitant]
     Active Substance: TRAZODONE HYDROCHLORIDE
  8. MONTELUKAST [Suspect]
     Active Substance: MONTELUKAST SODIUM
     Indication: HYPERSENSITIVITY
     Dosage: 10 MILLIGRAM DAILY; ON
     Route: 065
  9. FEXOFENADINE [Concomitant]
     Active Substance: FEXOFENADINE HYDROCHLORIDE
     Indication: HYPERSENSITIVITY
     Dosage: 180 MILLIGRAM DAILY;
  10. LISINOPRIL. [Concomitant]
     Active Substance: LISINOPRIL
     Indication: HYPERTENSION
     Dosage: 40 MILLIGRAM DAILY;
  11. DICLOFENAC [Concomitant]
     Active Substance: DICLOFENAC
  12. GABAPENTIN. [Concomitant]
     Active Substance: GABAPENTIN
     Dosage: 3.6 GRAM DAILY;
  13. AMITRIPTYLINE [Concomitant]
     Active Substance: AMITRIPTYLINE
  14. COTRIMOXAZOLE [Concomitant]
     Active Substance: SULFAMETHOXAZOLE\TRIMETHOPRIM
  15. NAPROXEN. [Concomitant]
     Active Substance: NAPROXEN
     Dosage: 1000 MILLIGRAM DAILY;

REACTIONS (1)
  - Rectal haemorrhage [Not Recovered/Not Resolved]

NARRATIVE: CASE EVENT DATE: 20210622
